FAERS Safety Report 5181620-6 (Version None)
Quarter: 2006Q4

REPORT INFORMATION
  Report Type: 
  Country: None (occurrence: None)
  Receive Date: 20061220
  Receipt Date: 20060213
  Transmission Date: 20070319
  Serious: No
  Sender: FDA-Public Use
  Company Number: US-GLAXOSMITHKLINE-A0593430A

PATIENT
  Age: 63 Year
  Sex: Female

DRUGS (2)
  1. COMMIT [Suspect]
  2. COMMIT [Suspect]

REACTIONS (8)
  - EYE SWELLING [None]
  - FACIAL PAIN [None]
  - GINGIVAL BLEEDING [None]
  - GINGIVAL DISCOLOURATION [None]
  - GINGIVAL PAIN [None]
  - NICOTINE DEPENDENCE [None]
  - SWELLING FACE [None]
  - TOOTH ABSCESS [None]
